FAERS Safety Report 20784077 (Version 1)
Quarter: 2022Q2

REPORT INFORMATION
  Report Type: Report from Study
  Country: IT (occurrence: IT)
  Receive Date: 20220504
  Receipt Date: 20220504
  Transmission Date: 20220721
  Serious: Yes (Other)
  Sender: FDA-Public Use
  Company Number: IT-UCBSA-2022025640

PATIENT

DRUGS (1)
  1. LACOSAMIDE [Suspect]
     Active Substance: LACOSAMIDE
     Indication: Epilepsy
     Dosage: 200 MG PER DAY (MEDIAN VALUE)

REACTIONS (4)
  - Sedation complication [Unknown]
  - Depressed mood [Unknown]
  - Dizziness [Unknown]
  - Somnolence [Unknown]
